FAERS Safety Report 9486645 (Version 1)
Quarter: 2013Q3

REPORT INFORMATION
  Report Type: Spontaneous
  Country: TR (occurrence: None)
  Receive Date: 20130823
  Receipt Date: 20130823
  Transmission Date: 20140515
  Serious: Yes (Hospitalization)
  Sender: FDA-Public Use
  Company Number: B0916599A

PATIENT
  Age: 24 Year
  Sex: Male

DRUGS (4)
  1. LAMOTRIGINE [Suspect]
  2. FLUVOXAMINE [Suspect]
  3. ZIPRASIDONE HCL [Suspect]
  4. CLOMIPRAMINE HCL [Concomitant]

REACTIONS (4)
  - Toxicity to various agents [None]
  - Electrocardiogram QT prolonged [None]
  - Depressed level of consciousness [None]
  - Incorrect dose administered [None]
